FAERS Safety Report 6190222-4 (Version None)
Quarter: 2009Q2

REPORT INFORMATION
  Report Type: 
  Country: None (occurrence: None)
  Receive Date: 20090514
  Receipt Date: 20090504
  Transmission Date: 20091009
  Serious: No
  Sender: FDA-Public Use
  Company Number: DE-EISAI INC.-E3810-02803-SPO-DE

PATIENT
  Sex: Female

DRUGS (1)
  1. ACIPHEX [Suspect]
     Dosage: UNKNOWN
     Route: 048
     Dates: end: 20090401

REACTIONS (1)
  - RENAL FAILURE ACUTE [None]
